FAERS Safety Report 8509967-3 (Version None)
Quarter: 2012Q3

REPORT INFORMATION
  Report Type: 
  Country: None (occurrence: None)
  Receive Date: 20120713
  Receipt Date: 20120705
  Transmission Date: 20120928
  Serious: No
  Sender: FDA-Public Use
  Company Number: JP-ELI_LILLY_AND_COMPANY-JP201206000483

PATIENT
  Age: 78 Year
  Sex: Female

DRUGS (25)
  1. PREDNISOLONE [Concomitant]
     Dosage: UNK
     Route: 048
     Dates: start: 20120508
  2. PREDNISOLONE [Concomitant]
     Dosage: UNK
     Route: 048
     Dates: start: 20120529
  3. SULFAMETHOXAZOLE AND TRIMETHOPRIM [Concomitant]
     Dosage: UNK
     Route: 048
  4. ADONA [Concomitant]
     Dosage: UNK
  5. PREDNISOLONE [Concomitant]
     Indication: RHEUMATOID ARTHRITIS
     Dosage: UNK
     Route: 048
  6. PREDNISOLONE [Concomitant]
     Dosage: UNK
     Route: 048
     Dates: start: 20120424
  7. BUPRENORPHINE [Concomitant]
     Indication: NEURALGIA
     Dosage: UNK
     Route: 062
  8. MAGNESIUM OXIDE [Concomitant]
     Dosage: UNK
     Route: 048
  9. PREDNISOLONE [Concomitant]
     Dosage: UNK
     Route: 048
     Dates: start: 20120508
  10. PREDNISOLONE [Concomitant]
     Dosage: UNK
     Route: 048
     Dates: start: 20120529
  11. FORTEO [Suspect]
     Dosage: UNK
     Route: 058
     Dates: start: 20120402
  12. MUCOSTA [Concomitant]
     Dosage: UNK
  13. DIAZEPAM [Concomitant]
     Dosage: UNK
  14. KETOPROFEN [Concomitant]
     Dosage: UNK
     Route: 062
  15. PREDNISOLONE [Concomitant]
     Dosage: UNK
     Route: 048
     Dates: start: 20120424
  16. LANSOPRAZOLE [Concomitant]
     Dosage: UNK
     Route: 048
  17. VERAPAMIL HCL [Concomitant]
     Dosage: UNK
  18. MICARDIS [Concomitant]
     Dosage: UNK
  19. FUNGIZONE [Concomitant]
     Dosage: UNK
     Route: 048
  20. PREDNISOLONE [Concomitant]
     Indication: RHEUMATOID ARTHRITIS
     Dosage: UNK
     Route: 048
  21. LENDORMIN [Concomitant]
     Dosage: UNK
     Route: 048
  22. WARFARIN POTASSIUM [Concomitant]
     Dosage: UNK
  23. VITAMIN B12 [Concomitant]
     Dosage: UNK
  24. WARFARIN POTASSIUM [Concomitant]
     Dosage: UNK
  25. WARFARIN POTASSIUM [Concomitant]
     Dosage: UNK

REACTIONS (2)
  - OEDEMA PERIPHERAL [None]
  - RHEUMATOID ARTHRITIS [None]
